FAERS Safety Report 4555086-0 (Version None)
Quarter: 2004Q4

REPORT INFORMATION
  Report Type: 
  Country: None (occurrence: None)
  Receive Date: 20041217
  Receipt Date: 20040804
  Transmission Date: 20050328
  Serious: No
  Sender: FDA-Public Use
  Company Number: 2004-BP-05378BP

PATIENT
  Age: 82 Year
  Sex: Male

DRUGS (12)
  1. SPIRIVA [Suspect]
     Indication: CHRONIC OBSTRUCTIVE AIRWAYS DISEASE
     Dosage: 18 MCG (18 MCG), IH
     Route: 055
     Dates: start: 20040601
  2. SEREVENT [Concomitant]
  3. TRENTAL [Concomitant]
  4. FOSAMAX [Concomitant]
  5. ACCOLATE [Concomitant]
  6. CIPRO [Concomitant]
  7. THERA-TEARS [Concomitant]
  8. ADVAIR (SERETIDE MITE) [Concomitant]
  9. FOSAMAX [Concomitant]
  10. MYSOLINE [Concomitant]
  11. NEXIUM [Concomitant]
  12. VENTOLIN [Concomitant]

REACTIONS (1)
  - DRY EYE [None]
